FAERS Safety Report 18034791 (Version 2)
Quarter: 2020Q3

REPORT INFORMATION
  Report Type: Spontaneous
  Country: FR (occurrence: FR)
  Receive Date: 20200716
  Receipt Date: 20200816
  Transmission Date: 20201103
  Serious: Yes (Hospitalization, Other)
  Sender: FDA-Public Use
  Company Number: NVSC2020FR199102

PATIENT
  Age: 77 Year
  Sex: Male

DRUGS (3)
  1. SOTALOL HYDROCHLORIDE. [Suspect]
     Active Substance: SOTALOL HYDROCHLORIDE
     Indication: PRODUCT USED FOR UNKNOWN INDICATION
     Dosage: 160 MG, QD (ONE TABLET IN THE MORNING AND IN THE EVENING)
     Route: 048
     Dates: start: 202001
  2. FUROSEMIDE. [Suspect]
     Active Substance: FUROSEMIDE
     Indication: PRODUCT USED FOR UNKNOWN INDICATION
     Dosage: 20 MG, QD
     Route: 048
  3. ELIQUIS [Suspect]
     Active Substance: APIXABAN
     Indication: PRODUCT USED FOR UNKNOWN INDICATION
     Dosage: 10 MG, QD (5 MILLIGRAM, BID)
     Route: 048

REACTIONS (7)
  - Dyspnoea [Unknown]
  - Gait disturbance [Unknown]
  - Hypokinesia [Unknown]
  - Dizziness postural [Unknown]
  - Pain in extremity [Unknown]
  - Inflammation [Unknown]
  - Chest discomfort [Unknown]

NARRATIVE: CASE EVENT DATE: 2020
